FAERS Safety Report 8988898 (Version 1)
Quarter: 2012Q4

REPORT INFORMATION
  Report Type: 
  Country: DE (occurrence: DE)
  Receive Date: 20121227
  Receipt Date: 20121227
  Transmission Date: 20130627
  Serious: Yes (Hospitalization)
  Sender: FDA-Public Use
  Company Number: DE-ELI_LILLY_AND_COMPANY-DE201212006522

PATIENT
  Age: 69 Year
  Sex: Male

DRUGS (1)
  1. BYDUREON [Suspect]
     Dosage: 2 mg, weekly (1/W)
     Route: 058

REACTIONS (2)
  - Localised intraabdominal fluid collection [Not Recovered/Not Resolved]
  - Weight decreased [Not Recovered/Not Resolved]
